FAERS Safety Report 25449437 (Version 2)
Quarter: 2025Q3

REPORT INFORMATION
  Report Type: Report from Study
  Country: EU (occurrence: EU)
  Receive Date: 20250618
  Receipt Date: 20250708
  Transmission Date: 20251021
  Serious: Yes (Death, Hospitalization, Other)
  Sender: ABBVIE
  Company Number: EU-ABBVIE-6327236

PATIENT
  Age: 88 Year
  Sex: Male
  Weight: 55 kg

DRUGS (2)
  1. CARBIDOPA\LEVODOPA [Suspect]
     Active Substance: CARBIDOPA\LEVODOPA
     Indication: Parkinson^s disease
     Dosage: 3.7 ML/H VIA TUBE
     Route: 050
     Dates: start: 20211006, end: 20250520
  2. CARBIDOPA\LEVODOPA [Suspect]
     Active Substance: CARBIDOPA\LEVODOPA

REACTIONS (13)
  - Renal failure [Fatal]
  - Femoral neck fracture [Not Recovered/Not Resolved]
  - Confusional state [Not Recovered/Not Resolved]
  - Fall [Not Recovered/Not Resolved]
  - Device issue [Unknown]
  - Fluid intake reduced [Unknown]
  - Immobile [Unknown]
  - Dementia [Unknown]
  - Decreased appetite [Unknown]
  - Multiple organ dysfunction syndrome [Unknown]
  - Hypophagia [Unknown]
  - Confusion postoperative [Unknown]
  - Gait disturbance [Unknown]

NARRATIVE: CASE EVENT DATE: 20250504
